FAERS Safety Report 16962901 (Version 1)
Quarter: 2019Q4

REPORT INFORMATION
  Report Type: Spontaneous
  Country: US (occurrence: US)
  Receive Date: 20191025
  Receipt Date: 20191025
  Transmission Date: 20200122
  Serious: No
  Sender: FDA-Public Use
  Company Number: None

PATIENT
  Age: 43 Year
  Weight: 72 kg

DRUGS (2)
  1. XEOMIN [Suspect]
     Active Substance: INCOBOTULINUMTOXINA
     Indication: SKIN WRINKLING
     Dosage: ?          QUANTITY:40 UNITS;?
     Route: 030
     Dates: start: 20191021
  2. MULTIVITAMIN [Concomitant]
     Active Substance: VITAMINS

REACTIONS (8)
  - Insomnia [None]
  - Influenza [None]
  - Dry mouth [None]
  - Diarrhoea [None]
  - Dysphagia [None]
  - Arthralgia [None]
  - Muscular weakness [None]
  - Feeling abnormal [None]

NARRATIVE: CASE EVENT DATE: 20191022
